FAERS Safety Report 11866179 (Version 1)
Quarter: 2015Q4

REPORT INFORMATION
  Report Type: Report from Study
  Country: US (occurrence: US)
  Receive Date: 20151223
  Receipt Date: 20151223
  Transmission Date: 20160305
  Serious: No
  Sender: FDA-Public Use
  Company Number: US-EXELIXIS-CABO-15005783

PATIENT
  Sex: Male
  Weight: 101.3 kg

DRUGS (3)
  1. COMETRIQ [Suspect]
     Active Substance: CABOZANTINIB S-MALATE
     Indication: CLEAR CELL SARCOMA OF SOFT TISSUE
     Dosage: 140 MG, QD
     Route: 048
     Dates: start: 20151013
  2. AMLODIPINE [Concomitant]
     Active Substance: AMLODIPINE BESYLATE
  3. VIAGRA [Concomitant]
     Active Substance: SILDENAFIL CITRATE

REACTIONS (10)
  - Diarrhoea [Unknown]
  - Ageusia [Unknown]
  - Blister [Not Recovered/Not Resolved]
  - Erythema [Unknown]
  - Hair colour changes [Not Recovered/Not Resolved]
  - Dysgeusia [Unknown]
  - Off label use [Unknown]
  - Skin discolouration [Unknown]
  - Muscle spasms [Unknown]
  - Back pain [Unknown]
